FAERS Safety Report 9197657 (Version 1)
Quarter: 2013Q1

REPORT INFORMATION
  Report Type: Spontaneous
  Country: AU (occurrence: AU)
  Receive Date: 20130328
  Receipt Date: 20130328
  Transmission Date: 20140127
  Serious: Yes (Hospitalization)
  Sender: FDA-Public Use
  Company Number: AU-BAYER-2013-039282

PATIENT
  Age: 90 Year
  Sex: Male

DRUGS (1)
  1. ULTRAVIST [Suspect]
     Indication: COMPUTERISED TOMOGRAM ABDOMEN
     Dosage: 80 ML, ONCE
     Route: 042
     Dates: start: 20130328, end: 20130328

REACTIONS (2)
  - Eye swelling [None]
  - Urticaria [None]
